FAERS Safety Report 5147631-1 (Version None)
Quarter: 2006Q4

REPORT INFORMATION
  Report Type: 
  Country: None (occurrence: None)
  Receive Date: 20061110
  Receipt Date: 20061030
  Transmission Date: 20070319
  Serious: Yes (Other)
  Sender: FDA-Public Use
  Company Number: HU-JNJFOC-20061101007

PATIENT
  Sex: Female
  Weight: 70 kg

DRUGS (2)
  1. TOPAMAX [Suspect]
     Indication: EPILEPSY
     Route: 048
  2. TRILEPTAL [Concomitant]
     Indication: EPILEPSY

REACTIONS (3)
  - OEDEMA GENITAL [None]
  - PEMPHIGUS [None]
  - RASH [None]
